FAERS Safety Report 7800823-2 (Version None)
Quarter: 2011Q4

REPORT INFORMATION
  Report Type: 
  Country: None (occurrence: None)
  Receive Date: 20111006
  Receipt Date: 20110926
  Transmission Date: 20120403
  Serious: Yes (Death)
  Sender: FDA-Public Use
  Company Number: FI-MDL-2011ML000120

PATIENT
  Age: 15 Year
  Sex: Male

DRUGS (1)
  1. BUPRENORPHINE [Suspect]
     Indication: PRODUCT USED FOR UNKNOWN INDICATION

REACTIONS (1)
  - ACCIDENTAL DEATH [None]
